FAERS Safety Report 4828656-X (Version None)
Quarter: 2005Q4

REPORT INFORMATION
  Report Type: 
  Country: None (occurrence: None)
  Receive Date: 20051014
  Receipt Date: 20050625
  Transmission Date: 20060501
  Serious: No
  Sender: FDA-Public Use
  Company Number: 2005SP001601

PATIENT
  Sex: Female

DRUGS (3)
  1. LUNESTA [Suspect]
     Dosage: 1X;ORAL
     Route: 048
     Dates: start: 20050101
  2. XANAX [Suspect]
     Dosage: 1X
     Dates: start: 20050101
  3. ALCOHOL [Suspect]
     Dosage: 1X
     Dates: start: 20050101

REACTIONS (2)
  - OVERDOSE [None]
  - SOMNOLENCE [None]
